FAERS Safety Report 8500638-6 (Version None)
Quarter: 2012Q3

REPORT INFORMATION
  Report Type: 
  Country: None (occurrence: None)
  Receive Date: 20120710
  Receipt Date: 20120704
  Transmission Date: 20120928
  Serious: Yes (Other)
  Sender: FDA-Public Use
  Company Number: CA-ROCHE-1084555

PATIENT
  Sex: Female
  Weight: 56.75 kg

DRUGS (6)
  1. MABTHERA [Suspect]
     Indication: RHEUMATOID ARTHRITIS
     Route: 042
     Dates: start: 20100622, end: 20111220
  2. ALDACTONE [Concomitant]
  3. CALCITE [Concomitant]
  4. ALTACE [Concomitant]
  5. TOLOXIN (CANADA) [Concomitant]
  6. CARVEDILOL [Concomitant]

REACTIONS (2)
  - MALIGNANT MELANOMA [None]
  - ERYTHEMA [None]
